FAERS Safety Report 10147100 (Version 2)
Quarter: 2014Q2

REPORT INFORMATION
  Report Type: Spontaneous
  Country: GR (occurrence: GR)
  Receive Date: 20140501
  Receipt Date: 20140516
  Transmission Date: 20141212
  Serious: Yes (Other)
  Sender: FDA-Public Use
  Company Number: GR-ELI_LILLY_AND_COMPANY-GR201404007394

PATIENT
  Age: 69 Year
  Sex: Female

DRUGS (3)
  1. FORSTEO [Suspect]
     Indication: OSTEOPOROSIS
     Dosage: 20 UG, QD
     Route: 058
     Dates: start: 201210
  2. OLARTAN [Concomitant]
     Indication: HYPERTENSION
     Dosage: 20 MG, QD
     Route: 048
  3. ADALAT [Concomitant]
     Indication: HYPERTENSION
     Dosage: 30 MG, QD
     Route: 048

REACTIONS (1)
  - Atrial fibrillation [Not Recovered/Not Resolved]
